FAERS Safety Report 18423484 (Version 1)
Quarter: 2020Q4

REPORT INFORMATION
  Report Type: Other
  Country: FR (occurrence: FR)
  Receive Date: 20201023
  Receipt Date: 20201023
  Transmission Date: 20210114
  Serious: Yes (Life-Threatening, Hospitalization)
  Sender: FDA-Public Use
  Company Number: FR-NOSTRUM LABORATORIES, INC.-2093083

PATIENT
  Age: 64 Year
  Sex: Female

DRUGS (1)
  1. DAPSONE. [Suspect]
     Active Substance: DAPSONE
     Indication: PEMPHIGOID
     Route: 048

REACTIONS (4)
  - Pleural effusion [Recovered/Resolved]
  - Ascites [Recovered/Resolved]
  - Hypoalbuminaemia [Recovered/Resolved]
  - Oedema peripheral [Recovered/Resolved]
